FAERS Safety Report 18534156 (Version 1)
Quarter: 2020Q4

REPORT INFORMATION
  Report Type: Spontaneous
  Country: US (occurrence: US)
  Receive Date: 20201123
  Receipt Date: 20201123
  Transmission Date: 20210114
  Serious: Yes (Disabling)
  Sender: FDA-Public Use
  Company Number: None

PATIENT
  Age: 39 Year
  Weight: 96.75 kg

DRUGS (9)
  1. PROPRANOLOL [Concomitant]
     Active Substance: PROPRANOLOL HYDROCHLORIDE
  2. ZOLPIDEM [Concomitant]
     Active Substance: ZOLPIDEM TARTRATE
  3. FINASTERIDE. [Suspect]
     Active Substance: FINASTERIDE
     Indication: ANDROGENETIC ALOPECIA
     Dosage: ?          QUANTITY:0.25 TABLET(S);?
     Route: 048
     Dates: start: 20201015, end: 20201019
  4. ALPRAZOLAM. [Concomitant]
     Active Substance: ALPRAZOLAM
  5. IBUPROFEN. [Concomitant]
     Active Substance: IBUPROFEN
  6. ASPIRIN. [Concomitant]
     Active Substance: ASPIRIN
  7. TESTOSTERONE. [Concomitant]
     Active Substance: TESTOSTERONE
  8. GABA [Concomitant]
     Active Substance: HOMEOPATHICS
  9. GERITOL [Concomitant]
     Active Substance: MINERALS\VITAMINS

REACTIONS (2)
  - Anxiety [None]
  - Panic attack [None]

NARRATIVE: CASE EVENT DATE: 20201015
